FAERS Safety Report 11984432 (Version 1)
Quarter: 2016Q1

REPORT INFORMATION
  Report Type: Spontaneous
  Country: US (occurrence: US)
  Receive Date: 20160201
  Receipt Date: 20160201
  Transmission Date: 20160526
  Serious: No
  Sender: FDA-Public Use
  Company Number: US-KADMON PHARMACEUTICALS, LLC-KAD201505-001184

PATIENT
  Age: 60 Year
  Sex: Male
  Weight: 122 kg

DRUGS (16)
  1. BUPROPION. [Concomitant]
     Active Substance: BUPROPION
  2. ALBUTEROL. [Concomitant]
     Active Substance: ALBUTEROL
  3. HYDROXYZINE [Concomitant]
     Active Substance: HYDROXYZINE\HYDROXYZINE HYDROCHLORIDE
  4. FORMOTEROL FUMARATE [Concomitant]
     Active Substance: FORMOTEROL FUMARATE
  5. OMEPRAZOLE. [Concomitant]
     Active Substance: OMEPRAZOLE
  6. GABAPENTIN. [Concomitant]
     Active Substance: GABAPENTIN
  7. MOMETASONE FUROATE. [Concomitant]
     Active Substance: MOMETASONE FUROATE
  8. TRAMADOL. [Concomitant]
     Active Substance: TRAMADOL
  9. RIBAVIRIN 200 MG TABLETS [Suspect]
     Active Substance: RIBAVIRIN
     Indication: HEPATITIS C
     Route: 048
     Dates: start: 20150428
  10. MELATONIN [Concomitant]
     Active Substance: MELATONIN
  11. VIGRAN [Concomitant]
  12. ALPRAZOLAM. [Concomitant]
     Active Substance: ALPRAZOLAM
  13. TRAMADOL. [Concomitant]
     Active Substance: TRAMADOL
  14. VIEKIRA PAK [Suspect]
     Active Substance: DASABUVIR\OMBITASVIR\PARITAPREVIR\RITONAVIR
     Indication: HEPATITIS C
     Dosage: TABLET
     Route: 048
     Dates: start: 20150429
  15. TRIAMCINOLONE [Concomitant]
     Active Substance: TRIAMCINOLONE
     Route: 061
  16. KETOROLAC [Concomitant]
     Active Substance: KETOROLAC\KETOROLAC TROMETHAMINE

REACTIONS (6)
  - Asthenia [Unknown]
  - Glossodynia [Unknown]
  - Oral disorder [Unknown]
  - Fatigue [Unknown]
  - Throat irritation [Unknown]
  - Balance disorder [Unknown]

NARRATIVE: CASE EVENT DATE: 20150501
